FAERS Safety Report 10263269 (Version 1)
Quarter: 2014Q2

REPORT INFORMATION
  Report Type: Spontaneous
  Country: US (occurrence: US)
  Receive Date: 20140626
  Receipt Date: 20140626
  Transmission Date: 20141212
  Serious: No
  Sender: FDA-Public Use
  Company Number: US-GILEAD-2014-0106563

PATIENT
  Age: 49 Year
  Sex: Male

DRUGS (18)
  1. LETAIRIS [Suspect]
     Indication: PULMONARY HYPERTENSION
     Dosage: 10 MG, QD
     Route: 065
     Dates: start: 20140619
  2. D-RIBOSE [Concomitant]
  3. L-CARNITINE                        /00878601/ [Concomitant]
  4. MAGNESIUM [Concomitant]
  5. VITAMIN D NOS [Concomitant]
  6. COQ-10 [Concomitant]
  7. FISH OIL [Concomitant]
  8. CENTRUM                            /02267801/ [Concomitant]
  9. VITAMIN B12 NOS [Concomitant]
  10. ESTER-C                            /00008001/ [Concomitant]
  11. LANTUS [Concomitant]
  12. APIDRA SOLOSTAR [Concomitant]
  13. FLUTICASONE [Concomitant]
  14. LEVOTHYROXINE [Concomitant]
  15. FUROSEMIDE [Concomitant]
  16. SIMVASTATIN [Concomitant]
  17. POTASSIUM CHLORIDE [Concomitant]
  18. ADCIRCA [Concomitant]

REACTIONS (2)
  - Nasal congestion [Recovered/Resolved]
  - Headache [Not Recovered/Not Resolved]
